FAERS Safety Report 6217278-4 (Version None)
Quarter: 2009Q2

REPORT INFORMATION
  Report Type: 
  Country: None (occurrence: None)
  Receive Date: 20090608
  Receipt Date: 20090607
  Transmission Date: 20091009
  Serious: Yes (Death)
  Sender: FDA-Public Use
  Company Number: US-PFIZER INC-2009202516

PATIENT
  Age: 28 Year
  Sex: Male

DRUGS (3)
  1. XANAX [Suspect]
  2. OXYCONTIN [Suspect]
  3. ALCOHOL [Suspect]

REACTIONS (1)
  - DEATH [None]
